FAERS Safety Report 7179207-9 (Version None)
Quarter: 2010Q4

REPORT INFORMATION
  Report Type: 
  Country: None (occurrence: None)
  Receive Date: 20101221
  Receipt Date: 20101216
  Transmission Date: 20110411
  Serious: Yes (Death)
  Sender: FDA-Public Use
  Company Number: JP-NOVOPROD-319492

PATIENT
  Age: 83 Year
  Sex: Male
  Weight: 44 kg

DRUGS (9)
  1. VICTOZA [Suspect]
     Indication: TYPE 2 DIABETES MELLITUS
     Dosage: 0.3 MG, QD
     Route: 058
     Dates: start: 20100907
  2. VICTOZA [Suspect]
     Dosage: 0.6 MG, QD
     Route: 058
     Dates: start: 20100914
  3. VICTOZA [Suspect]
     Dosage: 0.9 MG, QD
     Route: 058
     Dates: start: 20100921
  4. CALBLOCK [Concomitant]
     Dosage: 8 MG, QD
     Route: 048
     Dates: start: 20100824
  5. LASIX [Concomitant]
     Dosage: 40 MG, QD
     Route: 048
     Dates: start: 20100913
  6. ALDACTONE [Concomitant]
     Dosage: 25 MG, QD
     Route: 048
     Dates: start: 20100919
  7. AMARYL [Concomitant]
     Dosage: 0.5 MG, QD
     Route: 048
     Dates: start: 20100924
  8. BLOPRESS [Concomitant]
     Dosage: 8 MG, QD
     Route: 048
     Dates: start: 20100913
  9. BOUIOUGITOU [Concomitant]

REACTIONS (3)
  - DEATH [None]
  - FALL [None]
  - LOSS OF CONSCIOUSNESS [None]
